FAERS Safety Report 13347867 (Version 8)
Quarter: 2018Q2

REPORT INFORMATION
  Report Type: Report from Study
  Country: US (occurrence: US)
  Receive Date: 20170317
  Receipt Date: 20180601
  Transmission Date: 20180711
  Serious: Yes (Hospitalization)
  Sender: FDA-Public Use
  Company Number: US-JAZZ-2017-US-000467

PATIENT
  Age: 61 Year
  Sex: Female

DRUGS (21)
  1. XYREM [Suspect]
     Active Substance: SODIUM OXYBATE
     Indication: CATAPLEXY
     Dosage: 3 G, BID
     Route: 048
     Dates: start: 201701, end: 2017
  2. XYREM [Suspect]
     Active Substance: SODIUM OXYBATE
     Dosage: DECREASED DOSE TO 1.5 TO 1.75 G TWICE NIGHTLY
     Route: 048
  3. FISH OIL CONCENTRATE [Concomitant]
     Active Substance: FISH OIL
  4. ASCORBIC ACID. [Concomitant]
     Active Substance: ASCORBIC ACID
  5. XYREM [Suspect]
     Active Substance: SODIUM OXYBATE
     Indication: NARCOLEPSY
     Dosage: 2.25 G, BID
     Route: 048
     Dates: start: 201612, end: 2016
  6. BIOTIN [Concomitant]
     Active Substance: BIOTIN
  7. XYREM [Suspect]
     Active Substance: SODIUM OXYBATE
     Dosage: 2.25 G, BID
     Route: 048
     Dates: start: 2017
  8. ARMODAFINIL. [Suspect]
     Active Substance: ARMODAFINIL
     Indication: PRODUCT USED FOR UNKNOWN INDICATION
     Dosage: 250 MG, UNK
     Dates: start: 20161025, end: 201610
  9. ARMODAFINIL. [Suspect]
     Active Substance: ARMODAFINIL
     Dosage: 150 MG, UNK
     Dates: start: 201610, end: 201610
  10. DHEA [Concomitant]
     Active Substance: PRASTERONE
  11. WELLBUTRIN [Concomitant]
     Active Substance: BUPROPION HYDROCHLORIDE
  12. MAGNESIUM [Concomitant]
     Active Substance: MAGNESIUM
  13. XYREM [Suspect]
     Active Substance: SODIUM OXYBATE
     Dosage: 3 G, BID
     Route: 048
     Dates: start: 2017, end: 2017
  14. CYANOCOBALAMIN. [Concomitant]
     Active Substance: CYANOCOBALAMIN
  15. IRON [Concomitant]
     Active Substance: IRON
  16. XYREM [Suspect]
     Active Substance: SODIUM OXYBATE
     Dosage: 2.25 G, BID
     Route: 048
     Dates: start: 20170317, end: 2017
  17. METHYLPHENIDATE. [Concomitant]
     Active Substance: METHYLPHENIDATE
  18. PROGESTERONE. [Concomitant]
     Active Substance: PROGESTERONE
  19. CALCIUM CARBONATE W/COLECALCIFEROL [Concomitant]
     Active Substance: CALCIUM CARBONATE\CHOLECALCIFEROL
  20. VITAMIN D3 [Concomitant]
     Active Substance: CHOLECALCIFEROL
  21. FLUCONAZOLE. [Concomitant]
     Active Substance: FLUCONAZOLE

REACTIONS (8)
  - Feeling abnormal [Not Recovered/Not Resolved]
  - Depression [Recovered/Resolved]
  - Wrong technique in product usage process [Unknown]
  - Heart rate increased [Unknown]
  - Chest discomfort [Unknown]
  - Dyspnoea [Not Recovered/Not Resolved]
  - Neck pain [Unknown]
  - Anxiety [Not Recovered/Not Resolved]

NARRATIVE: CASE EVENT DATE: 20170212
